FAERS Safety Report 9536893 (Version 3)
Quarter: 2014Q2

REPORT INFORMATION
  Report Type: Spontaneous
  Country: US (occurrence: US)
  Receive Date: 20130919
  Receipt Date: 20140617
  Transmission Date: 20141212
  Serious: Yes (Hospitalization)
  Sender: FDA-Public Use
  Company Number: US-BAYER-2013-113110

PATIENT
  Age: 30 Year
  Sex: Female
  Weight: 99.77 kg

DRUGS (5)
  1. MIRENA [Suspect]
     Indication: CONTRACEPTION
     Dosage: 20 MCG/24HR, CONT
     Route: 015
     Dates: start: 20110510, end: 20110909
  2. MIRENA [Suspect]
     Indication: CONTRACEPTION
     Dosage: UNK
     Dates: start: 201104, end: 20110909
  3. LEXAPRO [Concomitant]
     Indication: ANXIETY
     Dosage: UNK
     Dates: start: 2008
  4. DEXILANT [Concomitant]
     Indication: DYSPEPSIA
     Dosage: UNK
     Dates: start: 2011
  5. PRENATAL VITAMINS [Concomitant]

REACTIONS (16)
  - Uterine perforation [None]
  - Abdominal pain lower [None]
  - Pelvic pain [None]
  - Injury [None]
  - Emotional distress [None]
  - Device dislocation [None]
  - Medical device complication [None]
  - Internal injury [None]
  - Depression [None]
  - Anxiety [None]
  - Depressed mood [None]
  - Fear [None]
  - Device dislocation [None]
  - Dysmenorrhoea [None]
  - Menorrhagia [None]
  - Haemorrhage [None]
